FAERS Safety Report 11914866 (Version 1)
Quarter: 2016Q1

REPORT INFORMATION
  Report Type: Spontaneous
  Country: US (occurrence: US)
  Receive Date: 20160113
  Receipt Date: 20160113
  Transmission Date: 20160526
  Serious: Yes (Death, Hospitalization, Other)
  Sender: FDA-Public Use
  Company Number: US-TARO-2016TAR00007

PATIENT
  Age: 74 Year
  Sex: Male

DRUGS (2)
  1. AMIODARONE HCL TABLET 200 MG [Suspect]
     Active Substance: AMIODARONE HYDROCHLORIDE
     Indication: ATRIAL FIBRILLATION
     Dosage: UNK
     Dates: start: 2013, end: 2013
  2. AMIODARONE TABLETS 200 MG (TEVA) [Suspect]
     Active Substance: AMIODARONE
     Dosage: UNK
     Dates: start: 2013, end: 2013

REACTIONS (18)
  - Depression [Unknown]
  - Dyspnoea [Unknown]
  - Pulmonary toxicity [Fatal]
  - Cough [Unknown]
  - Irritability [Unknown]
  - Restlessness [Unknown]
  - Chest pain [Unknown]
  - Lung infiltration [Unknown]
  - Pain [Unknown]
  - Nervousness [Unknown]
  - Palpitations [Unknown]
  - Fatigue [Unknown]
  - Asthenia [Unknown]
  - Disturbance in attention [Unknown]
  - Wheezing [Unknown]
  - Balance disorder [Unknown]
  - Pulmonary fibrosis [Fatal]
  - Off label use [Recovered/Resolved]

NARRATIVE: CASE EVENT DATE: 2013
